FAERS Safety Report 4353662-1 (Version None)
Quarter: 2004Q2

REPORT INFORMATION
  Report Type: 
  Country: None (occurrence: None)
  Receive Date: 20040430
  Receipt Date: 20040419
  Transmission Date: 20050107
  Serious: Yes (Life-Threatening)
  Sender: FDA-Public Use
  Company Number: 04P-167-0258035-00

PATIENT
  Age: 42 Year
  Sex: Female
  Weight: 105.1 kg

DRUGS (3)
  1. FERROGRAD TABLETS (FERO-GRADUMET FILMTAB) (FERROUS SULFATE) (FERROUS S [Suspect]
     Indication: IRON DEFICIENCY ANAEMIA
     Dosage: 325 MG, 1 IN 1 D PER ORAL
     Route: 048
     Dates: start: 20040122, end: 20040306
  2. ACETAMINOPHEN AND CODEINE PHOSPHATE [Concomitant]
  3. TRANEXAMIC ACID [Concomitant]

REACTIONS (3)
  - PRURITUS [None]
  - RASH [None]
  - STRIDOR [None]
